FAERS Safety Report 4882770-1 (Version None)
Quarter: 2006Q1

REPORT INFORMATION
  Report Type: 
  Country: None (occurrence: None)
  Receive Date: 20060117
  Receipt Date: 20050419
  Transmission Date: 20060701
  Serious: Yes (Hospitalization, Other)
  Sender: FDA-Public Use
  Company Number: US-MERCK-0504USA03808

PATIENT
  Age: 69 Year
  Sex: Female
  Weight: 68 kg

DRUGS (9)
  1. VIOXX [Suspect]
     Indication: ARTHRITIS
     Route: 048
     Dates: start: 20000101, end: 20040101
  2. TYLENOL (CAPLET) [Concomitant]
     Route: 065
  3. MONOPRIL [Concomitant]
     Route: 065
  4. WELLBUTRIN [Concomitant]
     Route: 065
  5. SYNTHROID [Concomitant]
     Route: 065
  6. TRICOR [Concomitant]
     Route: 065
  7. PREMARIN [Concomitant]
     Route: 065
  8. IMDUR [Concomitant]
     Route: 065
  9. LIPITOR [Concomitant]
     Route: 065

REACTIONS (18)
  - ANAEMIA [None]
  - CARDIAC FAILURE [None]
  - CARDIOMEGALY [None]
  - CARDIOMYOPATHY [None]
  - CATARACT [None]
  - CEREBROVASCULAR ACCIDENT [None]
  - CERUMEN IMPACTION [None]
  - CORONARY ARTERY DISEASE [None]
  - DIVERTICULUM [None]
  - DYSPHAGIA [None]
  - GOITRE [None]
  - INTERMITTENT CLAUDICATION [None]
  - ISCHAEMIC CARDIOMYOPATHY [None]
  - MYOCARDIAL INFARCTION [None]
  - PLEURAL EFFUSION [None]
  - POLYTRAUMATISM [None]
  - RENAL FAILURE [None]
  - URINARY TRACT INFECTION [None]
